FAERS Safety Report 21376893 (Version 1)
Quarter: 2022Q3

REPORT INFORMATION
  Report Type: Report from Study
  Country: ES (occurrence: ES)
  Receive Date: 20220926
  Receipt Date: 20220926
  Transmission Date: 20221027
  Serious: Yes (Death, Hospitalization, Other)
  Sender: FDA-Public Use
  Company Number: ES-ROCHE-3145844

PATIENT
  Age: 71 Year
  Sex: Male
  Weight: 85.6 kg

DRUGS (25)
  1. CARBOPLATIN [Suspect]
     Active Substance: CARBOPLATIN
     Indication: Small cell lung cancer extensive stage
     Route: 065
     Dates: start: 20220530
  2. ETOPOSIDE [Suspect]
     Active Substance: ETOPOSIDE
     Indication: Small cell lung cancer extensive stage
     Dosage: 190 MG
     Route: 042
     Dates: start: 20220530
  3. ATEZOLIZUMAB [Suspect]
     Active Substance: ATEZOLIZUMAB
     Indication: Small cell lung cancer extensive stage
     Dosage: 1200 MG, EVERY 3 WEEKS (MOST RECENT DOSE PRIOR TO AE AND SAE 21/JUN/2022, 23/JUN/2022)
     Route: 042
     Dates: start: 20220530
  4. DEXAMETHASONE [Concomitant]
     Active Substance: DEXAMETHASONE
     Dosage: UNK
     Dates: start: 20220625
  5. DEXAMETHASONE [Concomitant]
     Active Substance: DEXAMETHASONE
     Dosage: UNK
     Dates: start: 20220530
  6. ONDANSETRON [Concomitant]
     Active Substance: ONDANSETRON
     Dosage: UNK
     Dates: start: 20220530
  7. ACETYLCYSTEINE [Concomitant]
     Active Substance: ACETYLCYSTEINE
     Dosage: UNK UNK, 3X/DAY
     Dates: start: 20220621
  8. ACETYLCYSTEINE [Concomitant]
     Active Substance: ACETYLCYSTEINE
     Dosage: UNK UNK, 1X/DAY
     Dates: start: 20220512, end: 20220531
  9. CODEINE [Concomitant]
     Active Substance: CODEINE
     Dosage: UNK, 1X/DAY
     Dates: start: 20220624
  10. FUROSEMIDE [Concomitant]
     Active Substance: FUROSEMIDE
     Dosage: UNK UNK, 1X/DAY
     Dates: start: 20220712
  11. KETOCONAZOLE [Concomitant]
     Active Substance: KETOCONAZOLE
     Indication: Enterobacter infection
     Dosage: UNK, 1X/DAY
     Dates: start: 20220725
  12. BUDESONIDE\FORMOTEROL [Concomitant]
     Active Substance: BUDESONIDE\FORMOTEROL
     Dosage: UNK, 2X/DAY
     Dates: start: 20191031
  13. TRANEXAMIC ACID [Concomitant]
     Active Substance: TRANEXAMIC ACID
     Dosage: UNK, 1X/DAY
     Dates: start: 20220627, end: 20220701
  14. SODIUM CHLORIDE [Concomitant]
     Active Substance: SODIUM CHLORIDE
     Indication: Prophylaxis
     Dosage: UNK, 3X/DAY
  15. PANTOPRAZOLE [Concomitant]
     Active Substance: PANTOPRAZOLE
     Dosage: UNK, 1X/DAY
     Dates: start: 20220531
  16. CIPROFLOXACIN [Concomitant]
     Active Substance: CIPROFLOXACIN
     Dosage: UNK, 1X/DAY
     Dates: start: 20220712, end: 20220719
  17. AMOXICILLIN [Concomitant]
     Active Substance: AMOXICILLIN
     Dosage: UNK, 3X/DAY
     Dates: start: 20220624, end: 20220704
  18. MIDAZOLAM [Concomitant]
     Active Substance: MIDAZOLAM
     Dosage: UNK, 1X/DAY
     Dates: start: 20220625, end: 20220630
  19. OXYGEN [Concomitant]
     Active Substance: OXYGEN
     Dates: start: 20220625, end: 20220701
  20. CLAVULANIC ACID [Concomitant]
     Active Substance: CLAVULANIC ACID
     Dosage: UNK, 3X/DAY
     Dates: start: 20220624, end: 20220704
  21. MORPHINE [Concomitant]
     Active Substance: MORPHINE
     Dosage: UNK, 1X/DAY
     Dates: start: 20220625, end: 20220630
  22. DEXAMETHASONE [Concomitant]
     Active Substance: DEXAMETHASONE
     Indication: Prophylaxis
     Dosage: UNK, 1X/DAY
  23. MOVICOL [Concomitant]
     Active Substance: POLYETHYLENE GLYCOL 3350\POTASSIUM CHLORIDE\SODIUM BICARBONATE\SODIUM CHLORIDE
     Dates: start: 20220629
  24. IPRATROPIUM BROMIDE [Concomitant]
     Active Substance: IPRATROPIUM BROMIDE
     Dosage: UNK, 1X/DAY
     Dates: start: 20220624, end: 20220627
  25. VENTOLIN [Concomitant]
     Active Substance: ALBUTEROL SULFATE
     Dosage: UNK, 3X/DAY
     Dates: start: 20220523

REACTIONS (11)
  - Haemoptysis [Fatal]
  - Haemoptysis [Recovered/Resolved]
  - Enterobacter infection [Not Recovered/Not Resolved]
  - Constipation [Not Recovered/Not Resolved]
  - COVID-19 [Recovered/Resolved]
  - Back pain [Not Recovered/Not Resolved]
  - Oedema peripheral [Not Recovered/Not Resolved]
  - Limb injury [Not Recovered/Not Resolved]
  - Dyspnoea [Recovered/Resolved]
  - Transaminases increased [Not Recovered/Not Resolved]
  - Cough [Not Recovered/Not Resolved]

NARRATIVE: CASE EVENT DATE: 20220601
